FAERS Safety Report 21789571 (Version 1)
Quarter: 2022Q4

REPORT INFORMATION
  Report Type: Spontaneous
  Country: US (occurrence: US)
  Receive Date: 20221228
  Receipt Date: 20221228
  Transmission Date: 20230113
  Serious: Yes (Other)
  Sender: FDA-Public Use
  Company Number: US-PFIZER INC-PV202200130618

PATIENT
  Age: 85 Year
  Sex: Male

DRUGS (2)
  1. RETACRIT [Suspect]
     Active Substance: EPOETIN ALFA-EPBX
     Indication: Anaemia
     Dosage: 20000 IU, WEEKLY
     Dates: start: 20200825
  2. RETACRIT [Suspect]
     Active Substance: EPOETIN ALFA-EPBX
     Dosage: 30000 IU, WEEKLY
     Dates: start: 20201006

REACTIONS (2)
  - Dementia [Unknown]
  - Drug ineffective [Unknown]
